FAERS Safety Report 21951697 (Version 1)
Quarter: 2023Q1

REPORT INFORMATION
  Report Type: Spontaneous
  Country: US (occurrence: None)
  Receive Date: 20230203
  Receipt Date: 20230203
  Transmission Date: 20230418
  Serious: No
  Sender: FDA-Public Use
  Company Number: None

PATIENT
  Age: 72 Year
  Sex: Male
  Weight: 112.5 kg

DRUGS (1)
  1. GERICARE ARTIFICIAL TEARS LUBRICANT [Suspect]
     Active Substance: GLYCERIN\HYPROMELLOSES\POLYETHYLENE GLYCOL 400

REACTIONS (4)
  - Eye disorder [None]
  - Dizziness [None]
  - Feeling abnormal [None]
  - Pustule [None]

NARRATIVE: CASE EVENT DATE: 20230101
